FAERS Safety Report 11107838 (Version 1)
Quarter: 2015Q2

REPORT INFORMATION
  Report Type: Spontaneous
  Country: US (occurrence: US)
  Receive Date: 20150512
  Receipt Date: 20150512
  Transmission Date: 20150821
  Serious: No
  Sender: FDA-Public Use
  Company Number: US-BAYER-2015-203411

PATIENT
  Age: 66 Year
  Sex: Female
  Weight: 86.17 kg

DRUGS (1)
  1. ALEVE [Suspect]
     Active Substance: NAPROXEN SODIUM
     Indication: ARTHRITIS
     Dosage: 2 DF, QD
     Route: 048

REACTIONS (2)
  - Drug ineffective for unapproved indication [None]
  - Incorrect drug administration duration [None]

NARRATIVE: CASE EVENT DATE: 20150428
